FAERS Safety Report 23713233 (Version 1)
Quarter: 2024Q2

REPORT INFORMATION
  Report Type: Spontaneous
  Country: US (occurrence: US)
  Receive Date: 20240405
  Receipt Date: 20240405
  Transmission Date: 20240715
  Serious: Yes (Hospitalization)
  Sender: FDA-Public Use
  Company Number: US-MLMSERVICE-20240325-4907511-1

PATIENT
  Age: 62 Year
  Sex: Female

DRUGS (14)
  1. TRANSDERM SCOP [Interacting]
     Active Substance: SCOPOLAMINE
     Indication: Nausea
     Dosage: 1 MG/72 H, PATCH
     Route: 062
  2. FLUCONAZOLE [Interacting]
     Active Substance: FLUCONAZOLE
     Indication: Oropharyngeal candidiasis
     Dosage: UNK
     Route: 065
  3. HEPARIN SODIUM [Suspect]
     Active Substance: HEPARIN SODIUM
     Route: 058
  4. SULFAMETHOXAZOLE\TRIMETHOPRIM [Interacting]
     Active Substance: SULFAMETHOXAZOLE\TRIMETHOPRIM
     Indication: Antifungal prophylaxis
     Dosage: TMP-SMX
     Route: 065
  5. LEVOFLOXACIN [Concomitant]
     Active Substance: LEVOFLOXACIN
     Indication: Pneumonia
     Dosage: ANTIMICROBIAL THERAPY
     Route: 065
  6. ALBUTEROL\IPRATROPIUM [Concomitant]
     Active Substance: ALBUTEROL\IPRATROPIUM
     Dosage: UNK
     Route: 065
  7. BUDESONIDE [Concomitant]
     Active Substance: BUDESONIDE
     Dosage: UNK
     Route: 065
  8. MONTELUKAST [Concomitant]
     Active Substance: MONTELUKAST SODIUM
     Dosage: UNK
     Route: 065
  9. GUAIFENESIN [Concomitant]
     Active Substance: GUAIFENESIN
     Dosage: UNK
     Route: 065
  10. PREGABALIN [Concomitant]
     Active Substance: PREGABALIN
     Dosage: UNK
     Route: 065
  11. BICTEGRAVIR\EMTRICITABINE\TENOFOVIR ALAFENAMIDE [Concomitant]
     Active Substance: BICTEGRAVIR\EMTRICITABINE\TENOFOVIR ALAFENAMIDE
     Dosage: UNK
     Route: 065
  12. POLYETHYLENE GLYCOL [Concomitant]
     Active Substance: POLYETHYLENE GLYCOL
     Dosage: UNK
     Route: 065
  13. SENNOSIDES [Concomitant]
     Active Substance: SENNOSIDES
     Dosage: UNK
     Route: 065
  14. OXYGEN [Concomitant]
     Active Substance: OXYGEN
     Indication: Supplementation therapy
     Dosage: IMPROVING ON THE GENERAL MEDICAL FLOORS WITH DECREASING SUPPLEMENTAL OXYGEN REQUIREMENTS
     Route: 065

REACTIONS (5)
  - Supraventricular tachycardia [Recovered/Resolved]
  - Visual impairment [Unknown]
  - Mucosal dryness [Unknown]
  - Hyperthermia [Unknown]
  - Drug interaction [Unknown]
